FAERS Safety Report 20615877 (Version 1)
Quarter: 2022Q1

REPORT INFORMATION
  Report Type: Report from Study
  Country: US (occurrence: US)
  Receive Date: 20220321
  Receipt Date: 20220321
  Transmission Date: 20220423
  Serious: Yes (Hospitalization)
  Sender: FDA-Public Use
  Company Number: US-ABBVIE-22K-163-4320695-00

PATIENT
  Sex: Female

DRUGS (5)
  1. VENCLEXTA [Suspect]
     Active Substance: VENETOCLAX
     Indication: Plasma cell myeloma
     Dosage: 7 DAYS
     Route: 048
     Dates: start: 20220214, end: 202202
  2. VENCLEXTA [Suspect]
     Active Substance: VENETOCLAX
     Dosage: 7 DAYS
     Route: 048
     Dates: start: 202202, end: 202202
  3. VENCLEXTA [Suspect]
     Active Substance: VENETOCLAX
     Dosage: 7 DAYS
     Route: 048
     Dates: start: 202203, end: 202203
  4. VENCLEXTA [Suspect]
     Active Substance: VENETOCLAX
     Dosage: 2 TABLETS 7 DAYS WITH FOOD
     Route: 048
     Dates: start: 202203, end: 202203
  5. VENCLEXTA [Suspect]
     Active Substance: VENETOCLAX
     Dosage: 2 TABLETS 7 DAYS WITH FOOD
     Route: 048
     Dates: start: 202203

REACTIONS (2)
  - White blood cell count increased [Recovering/Resolving]
  - Pain [Recovering/Resolving]

NARRATIVE: CASE EVENT DATE: 20220101
